FAERS Safety Report 23028595 (Version 3)
Quarter: 2023Q4

REPORT INFORMATION
  Report Type: Spontaneous
  Country: US (occurrence: US)
  Receive Date: 20231004
  Receipt Date: 20231026
  Transmission Date: 20240109
  Serious: Yes (Other)
  Sender: FDA-Public Use
  Company Number: US-PFIZER INC-202300312183

PATIENT
  Age: 72 Year
  Sex: Female
  Weight: 104.33 kg

DRUGS (1)
  1. PAXLOVID [Suspect]
     Active Substance: NIRMATRELVIR\RITONAVIR
     Indication: COVID-19 treatment
     Dosage: [NIRMATRELVIR 300 MG]/[RITONAVIR 100 MG]; 2X/DAY
     Dates: start: 20230914, end: 20230918

REACTIONS (6)
  - COVID-19 pneumonia [Recovered/Resolved]
  - Disease recurrence [Recovered/Resolved]
  - COVID-19 [Recovered/Resolved]
  - Sneezing [Unknown]
  - Hypoacusis [Unknown]
  - Chills [Unknown]

NARRATIVE: CASE EVENT DATE: 20230901
